FAERS Safety Report 6161067-6 (Version None)
Quarter: 2009Q2

REPORT INFORMATION
  Report Type: 
  Country: None (occurrence: None)
  Receive Date: 20090420
  Receipt Date: 20090407
  Transmission Date: 20091009
  Serious: Yes (Hospitalization)
  Sender: FDA-Public Use
  Company Number: FR-PFIZER INC-2009194109

PATIENT

DRUGS (8)
  1. SOLU-MEDROL [Suspect]
     Dosage: UNK
     Dates: start: 20090305, end: 20090305
  2. MABTHERA [Suspect]
     Indication: RHEUMATOID ARTHRITIS
     Dosage: 500 MG, 2X/DAY
     Route: 042
     Dates: start: 20090305, end: 20090305
  3. POLARAMINE [Suspect]
     Dosage: UNK
     Dates: start: 20090305, end: 20090305
  4. PARACETAMOL [Suspect]
     Dosage: UNK
     Dates: start: 20090305, end: 20090305
  5. LEVOTHYROX [Concomitant]
  6. DIAMICRON [Concomitant]
  7. STAGID [Concomitant]
  8. SYMBICORT [Concomitant]

REACTIONS (3)
  - BRONCHOSPASM [None]
  - OXYGEN SATURATION ABNORMAL [None]
  - URTICARIA [None]
